FAERS Safety Report 5538135-2 (Version None)
Quarter: 2007Q4

REPORT INFORMATION
  Report Type: 
  Country: None (occurrence: None)
  Receive Date: 20071123
  Receipt Date: 20070209
  Transmission Date: 20080405
  Serious: Yes (Life-Threatening, Hospitalization)
  Sender: FDA-Public Use
  Company Number: US-JNJFOC-20061106181

PATIENT
  Age: 81 Year
  Sex: Male
  Weight: 70.3075 kg

DRUGS (4)
  1. LEVAQUIN [Suspect]
     Indication: PNEUMONIA
     Dosage: 500 MG, IN 1 DAY, ORAL
     Route: 048
     Dates: start: 20061121, end: 20061122
  2. DILANTIN (PHENYTOIN SODIUM) UNSPECIFIED [Concomitant]
  3. INHALERS (ANTI-ASTHMATICS) UNSPECIFIED [Concomitant]
  4. ANTIHYPERTENSIVE (ANTIHYPERTENSIVES) UNSPECIFIED [Concomitant]

REACTIONS (1)
  - ANAPHYLACTIC REACTION [None]
